FAERS Safety Report 10197611 (Version 1)
Quarter: 2014Q2

REPORT INFORMATION
  Report Type: Spontaneous
  Country: None (occurrence: US)
  Receive Date: 20140527
  Receipt Date: 20140527
  Transmission Date: 20141212
  Serious: No
  Sender: FDA-Public Use
  Company Number: US-NOVEN-14US009263

PATIENT
  Age: 38 Year
  Sex: Female

DRUGS (2)
  1. MINIVELLE [Suspect]
     Indication: INFERTILITY
     Dosage: 0.1 MG, UNK
     Route: 062
     Dates: start: 20140305, end: 201403
  2. CRINONE [Concomitant]
     Route: 067

REACTIONS (4)
  - Application site pruritus [Not Recovered/Not Resolved]
  - Application site urticaria [Not Recovered/Not Resolved]
  - Off label use [Recovered/Resolved]
  - Drug prescribing error [Recovered/Resolved]
